FAERS Safety Report 5051484-X (Version None)
Quarter: 2006Q3

REPORT INFORMATION
  Report Type: 
  Country: None (occurrence: None)
  Receive Date: 20060711
  Receipt Date: 20060706
  Transmission Date: 20061208
  Serious: Yes (Life-Threatening)
  Sender: FDA-Public Use
  Company Number: S06-USA-02080-01

PATIENT
  Age: 74 Year
  Sex: Male

DRUGS (5)
  1. NAMENDA [Suspect]
     Indication: AMNESIA
     Dosage: 10 MG BID; PO
     Route: 048
     Dates: start: 20050101
  2. NAMENDA [Suspect]
     Indication: AMNESIA
     Dosage: 5 MG QD; PO
     Route: 048
     Dates: start: 20050501, end: 20050101
  3. NAMENDA [Suspect]
     Indication: AMNESIA
     Dosage: 5 MG BID; PO
     Route: 048
     Dates: start: 20050101, end: 20050101
  4. NAMENDA [Suspect]
     Indication: AMNESIA
     Dosage: 15 MG QD; PO
     Route: 048
     Dates: start: 20050101, end: 20050101
  5. ATENOLOL [Concomitant]

REACTIONS (6)
  - DIARRHOEA [None]
  - INCISIONAL HERNIA [None]
  - LYMPHOMA [None]
  - NEOPLASM RECURRENCE [None]
  - PERIPHERAL ARTERY ANEURYSM [None]
  - URINARY RETENTION [None]
